FAERS Safety Report 6584555-7 (Version None)
Quarter: 2010Q1

REPORT INFORMATION
  Report Type: 
  Country: None (occurrence: None)
  Receive Date: 20100217
  Receipt Date: 20100204
  Transmission Date: 20100710
  Serious: Yes (Other)
  Sender: FDA-Public Use
  Company Number: US-CELGENEUS-163-21880-09111652

PATIENT
  Sex: Male
  Weight: 103.7 kg

DRUGS (17)
  1. REVLIMID [Suspect]
     Route: 048
     Dates: start: 20080731, end: 20091014
  2. REVLIMID [Suspect]
     Route: 048
     Dates: start: 20091027
  3. DEXAMETHASONE [Suspect]
     Indication: NON-HODGKIN'S LYMPHOMA
     Route: 048
     Dates: start: 20080802
  4. RITUXAN [Suspect]
     Indication: NON-HODGKIN'S LYMPHOMA
     Route: 065
     Dates: start: 20081030, end: 20081120
  5. ALLEGRA D 24 HOUR [Concomitant]
     Indication: SEASONAL ALLERGY
     Route: 048
  6. AMITRIPTYLINE HCL [Concomitant]
     Route: 065
  7. ASPIRIN [Concomitant]
     Route: 065
     Dates: start: 20080827
  8. ATENOLOL [Concomitant]
     Indication: HYPERTENSION
     Route: 065
  9. B-6 FOLIC ACID [Concomitant]
     Route: 065
  10. LOTREL [Concomitant]
     Indication: HYPERTENSION
     Dosage: 10/20MG
     Route: 065
  11. OMEPRAZOLE [Concomitant]
     Route: 065
  12. QUALAQUIN [Concomitant]
     Indication: MYALGIA
     Route: 065
  13. SERTRALINE HCL [Concomitant]
     Indication: DEPRESSION
     Route: 065
     Dates: start: 20081230
  14. TRAZODONE [Concomitant]
     Indication: INSOMNIA
     Route: 065
     Dates: start: 20081125
  15. VITAMIN B COMPLEX CAP [Concomitant]
     Route: 065
     Dates: start: 20081125
  16. VITAMIN D [Concomitant]
     Dosage: 50,000 UNIT
     Route: 065
  17. VITAMIN E [Concomitant]
     Dosage: 400 UNITS
     Route: 065

REACTIONS (7)
  - COUGH [None]
  - FATIGUE [None]
  - NEUTROPENIA [None]
  - PNEUMONIA [None]
  - PULMONARY CONGESTION [None]
  - PYREXIA [None]
  - WHITE BLOOD CELL COUNT DECREASED [None]
